FAERS Safety Report 4494884-9 (Version None)
Quarter: 2004Q4

REPORT INFORMATION
  Report Type: 
  Country: None (occurrence: None)
  Receive Date: 20041103
  Receipt Date: 20041025
  Transmission Date: 20050328
  Serious: Yes (Other)
  Sender: FDA-Public Use
  Company Number: 235366K04USA

PATIENT
  Age: 42 Year
  Sex: Female

DRUGS (7)
  1. REBIF [Suspect]
     Indication: MULTIPLE SCLEROSIS
     Dosage: 44 MCG, 3 IN 1 WEEKS, SUBCUTANEOUS
     Route: 058
     Dates: start: 20030801, end: 20040915
  2. REBIF [Suspect]
     Indication: MULTIPLE SCLEROSIS
     Dosage: 44 MCG, 3 IN 1 WEEKS, SUBCUTANEOUS
     Route: 058
     Dates: start: 20041011
  3. LAMICTAL [Concomitant]
  4. KLONOPIN [Concomitant]
  5. SYNTHROID [Concomitant]
  6. LIPITOR [Concomitant]
  7. INDERAL [Concomitant]

REACTIONS (4)
  - GRAND MAL CONVULSION [None]
  - MUSCLE SPASMS [None]
  - NERVOUSNESS [None]
  - RESPIRATORY DISORDER [None]
